FAERS Safety Report 6647493-7 (Version None)
Quarter: 2010Q1

REPORT INFORMATION
  Report Type: 
  Country: None (occurrence: None)
  Receive Date: 20100323
  Receipt Date: 20100309
  Transmission Date: 20100710
  Serious: Yes (Hospitalization, Other)
  Sender: FDA-Public Use
  Company Number: US-ROCHE-649307

PATIENT
  Sex: Female
  Weight: 140 kg

DRUGS (3)
  1. ACCUTANE [Suspect]
     Dosage: DOSE: 40 MG ALTERNATING WITH 80 MG EVERY OTHER DAY
     Route: 065
     Dates: start: 19910326
  2. ACCUTANE [Suspect]
     Route: 065
     Dates: start: 19910620, end: 19910826
  3. ACCUTANE [Suspect]
     Route: 065
     Dates: start: 19911028, end: 19920401

REACTIONS (17)
  - ACNE [None]
  - ANAL FISSURE [None]
  - BLOOD CHOLESTEROL INCREASED [None]
  - BLOOD TRIGLYCERIDES INCREASED [None]
  - CELLULITIS [None]
  - COLITIS ULCERATIVE [None]
  - CROHN'S DISEASE [None]
  - DEPRESSION [None]
  - GASTROENTERITIS [None]
  - HAEMORRHAGE [None]
  - INFECTION [None]
  - INFLAMMATORY BOWEL DISEASE [None]
  - LIP PAIN [None]
  - ONYCHOMYCOSIS [None]
  - PARONYCHIA [None]
  - SKIN EXFOLIATION [None]
  - WHITE BLOOD CELL COUNT DECREASED [None]
